FAERS Safety Report 20379345 (Version 3)
Quarter: 2022Q1

REPORT INFORMATION
  Report Type: Spontaneous
  Country: NL (occurrence: NL)
  Receive Date: 20220126
  Receipt Date: 20220329
  Transmission Date: 20220423
  Serious: Yes (Other)
  Sender: FDA-Public Use
  Company Number: NL-NOVARTISPH-NVSC2022NL014150

PATIENT
  Age: 4 Day
  Sex: Male

DRUGS (6)
  1. PREDNISONE [Suspect]
     Active Substance: PREDNISONE
     Indication: Intravascular papillary endothelial hyperplasia
     Dosage: 1.5 MG, BID (1 MG/KG, QD, DOL3)
     Route: 048
  2. PREDNISONE [Suspect]
     Active Substance: PREDNISONE
     Indication: Haemangioma-thrombocytopenia syndrome
     Dosage: 0.6 MG/KG, QD
     Route: 065
  3. PREDNISONE [Suspect]
     Active Substance: PREDNISONE
     Dosage: 0.4 MG/KG, QD
     Route: 065
  4. SIROLIMUS [Suspect]
     Active Substance: SIROLIMUS
     Indication: Intravascular papillary endothelial hyperplasia
     Dosage: 0.1 MG PER 48 HOURS, DOL4, (0.2 MG/M2/48 HOURS)
     Route: 065
  5. SIROLIMUS [Suspect]
     Active Substance: SIROLIMUS
     Indication: Haemangioma-thrombocytopenia syndrome
     Dosage: 0.15 MG (PER 48 HOUR)/ (0.33 MG/M2/24 H)
     Route: 065
  6. SIROLIMUS [Suspect]
     Active Substance: SIROLIMUS
     Dosage: UNK (LOW-DOSE)
     Route: 065

REACTIONS (4)
  - Sepsis neonatal [Recovered/Resolved]
  - Staphylococcal sepsis [Unknown]
  - Pyrexia [Unknown]
  - Product use in unapproved indication [Unknown]
